FAERS Safety Report 13987890 (Version 1)
Quarter: 2017Q3

REPORT INFORMATION
  Report Type: Spontaneous
  Country: US (occurrence: US)
  Receive Date: 20170919
  Receipt Date: 20170919
  Transmission Date: 20171128
  Serious: No
  Sender: FDA-Public Use
  Company Number: US-MAYNE PHARMA-2016MYN000632

PATIENT
  Sex: Female
  Weight: 64.4 kg

DRUGS (6)
  1. PROBIOTIC                          /06395501/ [Concomitant]
     Active Substance: BIFIDOBACTERIUM ANIMALIS LACTIS
     Dosage: UNK
  2. LOW-OGESTREL [Suspect]
     Active Substance: ETHINYL ESTRADIOL\NORGESTREL
     Indication: HAEMORRHAGE
     Dosage: ONE  0.3/0.03 MG TAB QD
     Route: 048
     Dates: start: 2016
  3. MULTIVITAMINS WITH A,B,D,E + K PLUS ZINC [Concomitant]
     Dosage: UNK
  4. COCONUT OIL [Concomitant]
     Active Substance: COCONUT OIL
     Dosage: UNK
  5. OMEGA 3                            /01333901/ [Concomitant]
     Active Substance: FISH OIL\TOCOPHEROL
     Dosage: UNK
  6. SILICA [Concomitant]
     Active Substance: SILICON DIOXIDE
     Dosage: UNK

REACTIONS (2)
  - Weight increased [Not Recovered/Not Resolved]
  - Blood triglycerides increased [Not Recovered/Not Resolved]

NARRATIVE: CASE EVENT DATE: 2016
